FAERS Safety Report 5305032-7 (Version None)
Quarter: 2007Q2

REPORT INFORMATION
  Report Type: 
  Country: None (occurrence: None)
  Receive Date: 20070417
  Receipt Date: 20070404
  Transmission Date: 20071010
  Serious: Yes (Death, Hospitalization)
  Sender: FDA-Public Use
  Company Number: 2007BI001822

PATIENT
  Age: 63 Year
  Sex: Female

DRUGS (3)
  1. AVONEX [Suspect]
     Indication: MULTIPLE SCLEROSIS
     Dosage: 30 UG; QW; IM
     Route: 030
     Dates: start: 20060118
  2. AVONEX [Suspect]
  3. AVONEX [Suspect]

REACTIONS (8)
  - ASTHENIA [None]
  - DECUBITUS ULCER [None]
  - DEHYDRATION [None]
  - DISEASE PROGRESSION [None]
  - MALNUTRITION [None]
  - MULTIPLE SCLEROSIS [None]
  - PNEUMONIA [None]
  - URINARY TRACT INFECTION [None]
